FAERS Safety Report 5142706-5 (Version None)
Quarter: 2006Q4

REPORT INFORMATION
  Report Type: 
  Country: None (occurrence: None)
  Receive Date: 20061027
  Receipt Date: 20061009
  Transmission Date: 20070319
  Serious: Yes (Hospitalization, Other)
  Sender: FDA-Public Use
  Company Number: US200610001803

PATIENT
  Sex: Male
  Weight: 65.8 kg

DRUGS (1)
  1. ZYPREXA [Suspect]
     Dates: start: 19970101, end: 20030101

REACTIONS (7)
  - BLOOD CHOLESTEROL ABNORMAL [None]
  - CEREBROVASCULAR ACCIDENT [None]
  - CONVULSION [None]
  - DIABETES MELLITUS [None]
  - DIABETIC COMA [None]
  - MYOCARDIAL INFARCTION [None]
  - WEIGHT DECREASED [None]
